FAERS Safety Report 8514646-2 (Version None)
Quarter: 2012Q3

REPORT INFORMATION
  Report Type: 
  Country: None (occurrence: None)
  Receive Date: 20120717
  Receipt Date: 20120710
  Transmission Date: 20120928
  Serious: Yes (Hospitalization)
  Sender: FDA-Public Use
  Company Number: BE-B.I. PHARMACEUTICALS,INC./RIDGEFIELD-2012-BL-00412BL

PATIENT
  Sex: Female
  Weight: 60 kg

DRUGS (12)
  1. CONTRAMAL RETARD [Concomitant]
     Dosage: 50 MG
  2. PROLOPA [Concomitant]
     Dosage: 500 MG
  3. ALDACTAZINE [Concomitant]
  4. D-VITAL FORTE [Concomitant]
     Dosage: 100/880
  5. AMLODIPINE [Concomitant]
     Dosage: 5 MG
  6. LORMETAZEPAM [Concomitant]
     Dosage: 1 MG
  7. PRADAXA [Suspect]
     Indication: ATRIAL FIBRILLATION
     Dosage: 220 MG
     Route: 048
     Dates: start: 20111010
  8. DAFALGAN FORTE [Concomitant]
     Dosage: 4 G
  9. SIMVASTATINE EG [Concomitant]
     Dosage: 20 MG
  10. BISOSANDOZ [Concomitant]
     Dosage: 2.5 MG
  11. VENLAFAXINE RETARD [Concomitant]
     Dosage: 75 MG
  12. LAXIDO ORANGE [Concomitant]

REACTIONS (2)
  - RIB FRACTURE [None]
  - HAEMOTHORAX [None]
